FAERS Safety Report 7579171-4 (Version None)
Quarter: 2011Q2

REPORT INFORMATION
  Report Type: 
  Country: None (occurrence: None)
  Receive Date: 20110628
  Receipt Date: 20090811
  Transmission Date: 20111010
  Serious: Yes (Other)
  Sender: FDA-Public Use
  Company Number: US-BAYER-200923903NA

PATIENT
  Age: 78 Year
  Sex: Male
  Weight: 60.8 kg

DRUGS (16)
  1. GADOLINIUM IN UNSPECIFIED DRUG [Suspect]
     Dosage: UNK
     Dates: start: 20040825, end: 20040825
  2. GADOLINIUM IN UNSPECIFIED DRUG [Suspect]
     Dosage: UNK
     Dates: start: 20051107, end: 20051107
  3. MULTIHANCE [Suspect]
     Indication: NUCLEAR MAGNETIC RESONANCE IMAGING
  4. GADOLINIUM IN UNSPECIFIED DRUG [Suspect]
     Dosage: UNK
     Dates: start: 20040505, end: 20040505
  5. OMNISCAN [Suspect]
     Dosage: 20 ML, UNK
     Route: 042
     Dates: start: 20050323, end: 20050323
  6. PROHANCE [Suspect]
     Indication: NUCLEAR MAGNETIC RESONANCE IMAGING
  7. GADOLINIUM IN UNSPECIFIED DRUG [Suspect]
     Indication: ANGIOGRAM
     Dosage: UNK
     Dates: start: 20050627, end: 20050627
  8. GADOLINIUM IN UNSPECIFIED DRUG [Suspect]
     Dosage: UNK
     Dates: start: 20051205, end: 20051205
  9. GADOLINIUM IN UNSPECIFIED DRUG [Suspect]
     Dosage: UNK
     Dates: start: 20060927, end: 20060927
  10. GADOLINIUM IN UNSPECIFIED DRUG [Suspect]
     Dosage: UNK
     Dates: start: 20061106, end: 20061106
  11. MAGNEVIST [Suspect]
     Indication: NUCLEAR MAGNETIC RESONANCE IMAGING
  12. GADOLINIUM IN UNSPECIFIED DRUG [Suspect]
     Indication: NUCLEAR MAGNETIC RESONANCE IMAGING
     Dosage: UNK
     Dates: start: 20031119, end: 20031119
  13. OMNISCAN [Suspect]
  14. OPTIMARK [Suspect]
     Indication: NUCLEAR MAGNETIC RESONANCE IMAGING
  15. OMNISCAN [Suspect]
     Indication: NUCLEAR MAGNETIC RESONANCE IMAGING
     Dosage: 20 ML, UNK
     Dates: start: 20041206, end: 20041206
  16. GADOLINIUM IN UNSPECIFIED DRUG [Suspect]
     Dosage: UNK
     Dates: start: 20070430, end: 20070430

REACTIONS (13)
  - JOINT STIFFNESS [None]
  - GENERAL PHYSICAL HEALTH DETERIORATION [None]
  - ERYTHEMA [None]
  - PAIN [None]
  - PAIN OF SKIN [None]
  - NEPHROGENIC SYSTEMIC FIBROSIS [None]
  - OEDEMA PERIPHERAL [None]
  - SKIN INDURATION [None]
  - EXFOLIATIVE RASH [None]
  - SCAR [None]
  - DEFORMITY [None]
  - ABASIA [None]
  - ONYCHOLYSIS [None]
